FAERS Safety Report 8318604-2 (Version None)
Quarter: 2012Q2

REPORT INFORMATION
  Report Type: 
  Country: None (occurrence: None)
  Receive Date: 20120427
  Receipt Date: 20090806
  Transmission Date: 20120825
  Serious: No
  Sender: FDA-Public Use
  Company Number: US-TEVA-2009009329

PATIENT
  Sex: Male

DRUGS (2)
  1. NUVIGIL [Suspect]
     Dosage: 250 MILLIGRAM;
     Route: 048
  2. NUVIGIL [Suspect]
     Dosage: 125 MILLIGRAM;
     Route: 048

REACTIONS (3)
  - ADVERSE EVENT [None]
  - INTENTIONAL DRUG MISUSE [None]
  - DRUG EFFECT INCREASED [None]
